FAERS Safety Report 4801029-1 (Version None)
Quarter: 2005Q4

REPORT INFORMATION
  Report Type: 
  Country: None (occurrence: None)
  Receive Date: 20051012
  Receipt Date: 20050929
  Transmission Date: 20060501
  Serious: Yes (Death, Hospitalization)
  Sender: FDA-Public Use
  Company Number: 2005136579

PATIENT
  Age: 75 Year
  Sex: Male
  Weight: 61 kg

DRUGS (7)
  1. VFEND [Suspect]
     Indication: ENDOCARDITIS
     Dosage: 400 MG, ORAL
     Route: 048
     Dates: start: 20050818, end: 20050922
  2. AMLODIPINE [Concomitant]
  3. NEXIUM [Concomitant]
  4. RAMIPRIL [Concomitant]
  5. METOPROLOL TARTRATE [Concomitant]
  6. COUMADIN [Concomitant]
  7. POTASSIUM CHLORIDE [Concomitant]

REACTIONS (1)
  - CARDIAC ARREST [None]
